FAERS Safety Report 4771742-3 (Version None)
Quarter: 2005Q3

REPORT INFORMATION
  Report Type: 
  Country: None (occurrence: None)
  Receive Date: 20050916
  Receipt Date: 20050901
  Transmission Date: 20060218
  Serious: Yes (Hospitalization)
  Sender: FDA-Public Use
  Company Number: US-GLAXOSMITHKLINE-A0572676A

PATIENT
  Sex: Male

DRUGS (1)
  1. ECOTRIN [Suspect]
     Indication: PROPHYLAXIS
     Route: 048

REACTIONS (2)
  - ILEAL PERFORATION [None]
  - POSTOPERATIVE ABSCESS [None]
